FAERS Safety Report 11003200 (Version 1)
Quarter: 2015Q2

REPORT INFORMATION
  Report Type: Spontaneous
  Country: US (occurrence: None)
  Receive Date: 20150408
  Receipt Date: 20150408
  Transmission Date: 20150821
  Serious: No
  Sender: FDA-Public Use
  Company Number: None

PATIENT
  Age: 61 Year
  Sex: Female

DRUGS (2)
  1. SOVALDI [Suspect]
     Active Substance: SOFOSBUVIR
     Indication: HEPATITIS
     Route: 048
     Dates: start: 20150312, end: 20150406
  2. RIBAVIRIN 200MG ZYDUS [Suspect]
     Active Substance: RIBAVIRIN
     Indication: HEPATITIS
     Dosage: 600 MG  QAM  PO?400 MG APM
     Route: 048
     Dates: start: 20150312, end: 20150406

REACTIONS (5)
  - Rash pruritic [None]
  - Rash erythematous [None]
  - Dyspnoea [None]
  - Rash papular [None]
  - Palpitations [None]

NARRATIVE: CASE EVENT DATE: 20150401
